FAERS Safety Report 9438832 (Version 2)
Quarter: 2013Q3

REPORT INFORMATION
  Report Type: Spontaneous
  Country: IT (occurrence: IT)
  Receive Date: 20130802
  Receipt Date: 20130920
  Transmission Date: 20140515
  Serious: Yes (Hospitalization, Other)
  Sender: FDA-Public Use
  Company Number: IT-ELI_LILLY_AND_COMPANY-IT201307007244

PATIENT
  Age: 84 Year
  Sex: Male

DRUGS (6)
  1. HUMULIN REGULAR [Suspect]
     Indication: TYPE 2 DIABETES MELLITUS
     Dosage: 15 IU, QD
     Route: 058
     Dates: start: 20100101
  2. LANTUS [Suspect]
     Indication: TYPE 2 DIABETES MELLITUS
     Dosage: 8 IU, QD
     Route: 058
     Dates: start: 20100101
  3. AMIODARONE HYDROCHLORIDE [Concomitant]
  4. ASCRIPTIN [Concomitant]
  5. AVODART [Concomitant]
     Dosage: 0.5 MG, UNK
  6. FORADIL [Concomitant]
     Dosage: 12 UG, UNK

REACTIONS (2)
  - Stupor [Recovering/Resolving]
  - Hypoglycaemia [Recovering/Resolving]
